FAERS Safety Report 16909451 (Version 1)
Quarter: 2019Q4

REPORT INFORMATION
  Report Type: Spontaneous
  Country: CA (occurrence: CA)
  Receive Date: 20191011
  Receipt Date: 20191011
  Transmission Date: 20200122
  Serious: Yes (Disabling, Other)
  Sender: FDA-Public Use
  Company Number: CA-TEVA-2019-CA-1118597

PATIENT
  Age: 19 Year
  Sex: Male
  Weight: 55 kg

DRUGS (80)
  1. ALLOPURINOL. [Concomitant]
     Active Substance: ALLOPURINOL
  2. AMLODIPINE [Concomitant]
     Active Substance: AMLODIPINE BESYLATE
  3. CASPOFUNGIN ACETATE. [Concomitant]
     Active Substance: CASPOFUNGIN ACETATE
  4. DESIPRAMINE [Concomitant]
     Active Substance: DESIPRAMINE
  5. HYDROXYZINE [Concomitant]
     Active Substance: HYDROXYZINE HYDROCHLORIDE
  6. MAGNESIUM SULFATE. [Concomitant]
     Active Substance: MAGNESIUM SULFATE
  7. NAPROXEN. [Concomitant]
     Active Substance: NAPROXEN
  8. PIPERACILLIN AND TAZOBACTAM [Concomitant]
     Active Substance: PIPERACILLIN SODIUM\TAZOBACTAM SODIUM
  9. PREGABALIN. [Concomitant]
     Active Substance: PREGABALIN
  10. SPIRONOLACTONE. [Concomitant]
     Active Substance: SPIRONOLACTONE
  11. MITOXANTRONE HYDROCHLORIDE. [Suspect]
     Active Substance: MITOXANTRONE HYDROCHLORIDE
     Indication: PRODUCT USED FOR UNKNOWN INDICATION
     Route: 065
  12. PREDNISONE. [Suspect]
     Active Substance: PREDNISONE
     Indication: PRODUCT USED FOR UNKNOWN INDICATION
     Dosage: 200 MILLIGRAM DAILY;
     Route: 048
  13. PREDNISONE. [Suspect]
     Active Substance: PREDNISONE
     Dosage: 200 MILLIGRAM DAILY;
     Route: 048
  14. CEFAZOLIN [Concomitant]
     Active Substance: CEFAZOLIN
  15. CEFTAZIDIME. [Concomitant]
     Active Substance: CEFTAZIDIME
  16. CLARITHROMYCIN. [Concomitant]
     Active Substance: CLARITHROMYCIN
  17. FLUCONAZOLE. [Concomitant]
     Active Substance: FLUCONAZOLE
  18. FLUDARABINE [Concomitant]
     Active Substance: FLUDARABINE PHOSPHATE
  19. METHOTREXATE. [Concomitant]
     Active Substance: METHOTREXATE
     Route: 065
  20. MYCOPHENOLATE MOFETIL. [Concomitant]
     Active Substance: MYCOPHENOLATE MOFETIL
  21. NIFEDIPINE. [Concomitant]
     Active Substance: NIFEDIPINE
  22. ONDANSETRON [Concomitant]
     Active Substance: ONDANSETRON
  23. TRIMETHOPRIM. [Concomitant]
     Active Substance: TRIMETHOPRIM
  24. ZINECARD [DEXRAZOXANE] [Concomitant]
  25. ACETAMINOPHEN. [Concomitant]
     Active Substance: ACETAMINOPHEN
  26. ACYCLOVIR. [Concomitant]
     Active Substance: ACYCLOVIR
  27. BUSULFAN. [Concomitant]
     Active Substance: BUSULFAN
  28. CEFTRIAXONE SODIUM. [Concomitant]
     Active Substance: CEFTRIAXONE SODIUM
  29. CHOLECALCIFEROL [Concomitant]
     Active Substance: CHOLECALCIFEROL
  30. CIPROFLOXACIN. [Concomitant]
     Active Substance: CIPROFLOXACIN
  31. LANSOPRAZOLE. [Concomitant]
     Active Substance: LANSOPRAZOLE
  32. MELATONIN [Concomitant]
     Active Substance: MELATONIN
  33. METHYLPREDNISOLONE. [Concomitant]
     Active Substance: METHYLPREDNISOLONE
  34. PENTAMIDINE ISETHIONATE. [Concomitant]
     Active Substance: PENTAMIDINE ISETHIONATE
  35. URSODEOXYCHOLIC ACID [Concomitant]
     Active Substance: URSODIOL
  36. VFEND [Concomitant]
     Active Substance: VORICONAZOLE
  37. ETOPOSIDE. [Concomitant]
     Active Substance: ETOPOSIDE
  38. LEUCOVORIN [FOLINIC ACID] [Concomitant]
     Active Substance: LEUCOVORIN
  39. MEROPENEM. [Concomitant]
     Active Substance: MEROPENEM
  40. MESNA. [Concomitant]
     Active Substance: MESNA
  41. NEULASTA [Concomitant]
     Active Substance: PEGFILGRASTIM
  42. VANCOMYCIN [Concomitant]
     Active Substance: VANCOMYCIN
  43. VORICONAZOLE. [Concomitant]
     Active Substance: VORICONAZOLE
  44. TIMOLOL MALEATE. [Concomitant]
     Active Substance: TIMOLOL MALEATE
     Indication: PRODUCT USED FOR UNKNOWN INDICATION
     Route: 065
  45. CEPHALEXIN [CEFALEXIN] [Concomitant]
     Active Substance: CEPHALEXIN
  46. CICLOSPORIN [Concomitant]
     Active Substance: CYCLOSPORINE
  47. DIGOXIN. [Concomitant]
     Active Substance: DIGOXIN
  48. HYDROCORTISONE. [Concomitant]
     Active Substance: HYDROCORTISONE
  49. HYDROMORPHONE [Concomitant]
     Active Substance: HYDROMORPHONE
  50. RELENZA [Concomitant]
     Active Substance: ZANAMIVIR
  51. TOBRAMYCIN. [Concomitant]
     Active Substance: TOBRAMYCIN
  52. AMITRIPTYLINE [Suspect]
     Active Substance: AMITRIPTYLINE
     Indication: PRODUCT USED FOR UNKNOWN INDICATION
     Route: 065
  53. CYTARABINE. [Suspect]
     Active Substance: CYTARABINE
     Indication: PRODUCT USED FOR UNKNOWN INDICATION
     Route: 065
  54. ALTEPLASE. [Concomitant]
     Active Substance: ALTEPLASE
  55. CODEINE [Concomitant]
     Active Substance: CODEINE
  56. CYCLOPHOSPHAMIDE. [Concomitant]
     Active Substance: CYCLOPHOSPHAMIDE
  57. DAUNORUBICIN HYDROCHLORIDE. [Concomitant]
     Active Substance: DAUNORUBICIN HYDROCHLORIDE
  58. GABAPENTIN. [Concomitant]
     Active Substance: GABAPENTIN
  59. MIRTAZAPINE. [Concomitant]
     Active Substance: MIRTAZAPINE
  60. OMEPRAZOLE. [Concomitant]
     Active Substance: OMEPRAZOLE
  61. POTASSIUM CHLORIDE. [Concomitant]
     Active Substance: POTASSIUM CHLORIDE
  62. TRIMETHOPRIM SULFAMETHOXAZOLE [Concomitant]
     Active Substance: SULFAMETHOXAZOLE\TRIMETHOPRIM
  63. AMPHOTERICIN B. [Concomitant]
     Active Substance: AMPHOTERICIN B
  64. LEVOFLOXACIN. [Concomitant]
     Active Substance: LEVOFLOXACIN
  65. LOSARTAN. [Concomitant]
     Active Substance: LOSARTAN
  66. METHOTREXATE. [Concomitant]
     Active Substance: METHOTREXATE
     Route: 065
  67. MORPHINE SULFATE. [Concomitant]
     Active Substance: MORPHINE SULFATE
  68. NYSTATIN. [Concomitant]
     Active Substance: NYSTATIN
  69. RANITIDINE. [Concomitant]
     Active Substance: RANITIDINE
  70. TAMIFLU [Concomitant]
     Active Substance: OSELTAMIVIR PHOSPHATE
  71. ZOPICLONE [Concomitant]
     Active Substance: ZOPICLONE
  72. CETIRIZINE [Concomitant]
     Active Substance: CETIRIZINE HYDROCHLORIDE
  73. DOCUSATE [Concomitant]
     Active Substance: DOCUSATE
  74. FAMCICLOVIR. [Concomitant]
     Active Substance: FAMCICLOVIR
  75. FASTURTEC [Concomitant]
     Active Substance: RASBURICASE
  76. INSULIN [Concomitant]
     Active Substance: INSULIN NOS
  77. MAGNESIUM [Concomitant]
     Active Substance: MAGNESIUM
  78. QUETIAPINE. [Concomitant]
     Active Substance: QUETIAPINE
  79. TACROLIMUS. [Concomitant]
     Active Substance: TACROLIMUS
  80. TICARCILLIN [Concomitant]
     Active Substance: TICARCILLIN

REACTIONS (4)
  - Arthralgia [Unknown]
  - Back pain [Unknown]
  - Osteoporosis [Unknown]
  - Osteonecrosis [Unknown]
